FAERS Safety Report 8743299 (Version 2)
Quarter: 2012Q4

REPORT INFORMATION
  Report Type: 
  Country: JP (occurrence: JP)
  Receive Date: 20120824
  Receipt Date: 20121206
  Transmission Date: 20130627
  Serious: Yes (Hospitalization)
  Sender: FDA-Public Use
  Company Number: JP-BRISTOL-MYERS SQUIBB COMPANY-16863920

PATIENT

DRUGS (2)
  1. HYDREA [Suspect]
  2. ADALAT [Suspect]

REACTIONS (1)
  - Hyponatraemia [Unknown]
